FAERS Safety Report 8708986 (Version 2)
Quarter: 2014Q1

REPORT INFORMATION
  Report Type: Spontaneous
  Country: US (occurrence: US)
  Receive Date: 20120806
  Receipt Date: 20140310
  Transmission Date: 20141002
  Serious: Yes (Other)
  Sender: FDA-Public Use
  Company Number: US-PFIZER INC-2012186889

PATIENT
  Age: 64 Year
  Sex: Female
  Weight: 75.74 kg

DRUGS (23)
  1. GABAPENTIN [Concomitant]
     Dosage: 800 MG, UNK
  2. CARBAMAZEPINE [Concomitant]
     Dosage: 200 MG, UNK
  3. FOSAMAX [Concomitant]
     Dosage: 70 MG, UNK
  4. SPIRONOLACTONE AND HYDROCHLOROTHIAZIDE [Concomitant]
     Dosage: 25/25 MG
  5. BETASERON [Concomitant]
     Dosage: UNK
  6. KLOR-CON [Concomitant]
     Dosage: UNK
  7. DONEPEZIL [Concomitant]
     Dosage: 10 MG, UNK
  8. SERTRALINE [Concomitant]
     Dosage: 150 MG, UNK
  9. IMODIUM [Concomitant]
     Dosage: UNK
  10. BABY ASPIRIN [Concomitant]
     Dosage: 81 MG, UNK
  11. CALCIUM + VITAMIN D [Concomitant]
     Dosage: UNK
  12. VITAMIN C [Concomitant]
     Dosage: 500 MG, UNK
  13. AMBIEN [Concomitant]
     Dosage: 10 MG, UNK
  14. NITROFURANTOIN [Concomitant]
     Dosage: 100 MG, UNK
  15. CALCIUM [Concomitant]
     Dosage: 500 MG, UNK
  16. VITAMIN D [Concomitant]
     Dosage: UNK
  17. BIOTIN [Concomitant]
     Dosage: UNK
  18. MULTIVITAMINS [Concomitant]
     Dosage: UNK
  19. SOLU-MEDROL [Suspect]
     Indication: MULTIPLE SCLEROSIS
     Dosage: 750 MG, UNK
  20. AMPYRA [Suspect]
     Indication: GAIT DISTURBANCE
     Dosage: 10 MG, 2X/DAY
     Route: 048
     Dates: start: 201107
  21. TIZANIDINE [Suspect]
     Dosage: 2 MG, UNK
  22. LEVOTHYROXINE [Concomitant]
     Dosage: 88 UG, UNK
  23. FUROSEMIDE [Concomitant]
     Dosage: 40 MG, UNK

REACTIONS (7)
  - Multiple sclerosis relapse [Recovered/Resolved]
  - Insomnia [Unknown]
  - Fatigue [Unknown]
  - Muscular weakness [Recovered/Resolved]
  - Hypoaesthesia [Unknown]
  - Flushing [Unknown]
  - Drug ineffective [Unknown]
